FAERS Safety Report 4778858-6 (Version None)
Quarter: 2005Q3

REPORT INFORMATION
  Report Type: 
  Country: None (occurrence: None)
  Receive Date: 20050922
  Receipt Date: 20050915
  Transmission Date: 20060218
  Serious: Yes (Other)
  Sender: FDA-Public Use
  Company Number: 2005-09-0870

PATIENT
  Age: 31 Year
  Sex: Male
  Weight: 100 kg

DRUGS (3)
  1. CLARINEX [Suspect]
     Dosage: 1 TAB QD ORAL
  2. MULTI-VITAMINS [Concomitant]
  3. VITAMIN B COMPLEX CAP [Concomitant]

REACTIONS (3)
  - EPISTAXIS [None]
  - HYPERHIDROSIS [None]
  - HYPOTENSION [None]
